FAERS Safety Report 24829849 (Version 3)
Quarter: 2025Q3

REPORT INFORMATION
  Report Type: Report from Study
  Country: EU (occurrence: EU)
  Receive Date: 20250110
  Receipt Date: 20250803
  Transmission Date: 20251020
  Serious: Yes (Hospitalization, Other)
  Sender: ALEXION PHARMACEUTICALS
  Company Number: None

PATIENT
  Age: 81 Year
  Sex: Male

DRUGS (5)
  1. FASENRA [Suspect]
     Active Substance: BENRALIZUMAB
  2. OMEPRAZOLE [Suspect]
     Active Substance: OMEPRAZOLE
  3. ASPIRIN [Interacting]
     Active Substance: ASPIRIN
     Indication: Prophylaxis
     Dosage: 300 MILLIGRAM, QD
     Dates: start: 20140410
  4. ATORVASTATIN [Interacting]
     Active Substance: ATORVASTATIN
     Indication: Dyslipidaemia
     Dosage: 40 MILLIGRAM, QD
     Dates: start: 20140410
  5. Lisinopril combino [Concomitant]
     Indication: Hypertension
     Dosage: 1 DOSAGE FORM, QD
     Dates: start: 20100127, end: 20180401

REACTIONS (1)
  - Lower gastrointestinal haemorrhage [Recovered/Resolved]

NARRATIVE: CASE EVENT DATE: 20180331
